FAERS Safety Report 5740871-X (Version None)
Quarter: 2008Q2

REPORT INFORMATION
  Report Type: 
  Country: None (occurrence: None)
  Receive Date: 20080515
  Receipt Date: 20080114
  Transmission Date: 20081010
  Serious: No
  Sender: FDA-Public Use
  Company Number: WAES 0801USA02783

PATIENT
  Age: 55 Year
  Sex: Male
  Weight: 115.6672 kg

DRUGS (10)
  1. TAB ISENTRESS [Suspect]
     Indication: HIV INFECTION
     Dosage: 400 MG/BID/PO
     Route: 048
     Dates: start: 20071231
  2. REYATAZ [Suspect]
     Dates: start: 20071101
  3. NORVIR [Suspect]
     Dates: start: 20071101
  4. CELEXA [Concomitant]
  5. EFFEXOR XR [Concomitant]
  6. KLONOPIN [Concomitant]
  7. RISPERDAL [Concomitant]
  8. RITALIN [Concomitant]
  9. TRIZIVIR [Concomitant]
  10. VIREAD [Concomitant]

REACTIONS (4)
  - ANGER [None]
  - DISORIENTATION [None]
  - DIZZINESS [None]
  - HYPOKINESIA [None]
